FAERS Safety Report 18153816 (Version 1)
Quarter: 2020Q3

REPORT INFORMATION
  Report Type: Spontaneous
  Country: QA (occurrence: QA)
  Receive Date: 20200816
  Receipt Date: 20200816
  Transmission Date: 20201103
  Serious: Yes (Other)
  Sender: FDA-Public Use
  Company Number: NVSC2020QA226056

PATIENT
  Age: 34 Year
  Sex: Female

DRUGS (1)
  1. ELTROMBOPAG [Suspect]
     Active Substance: ELTROMBOPAG
     Indication: THROMBOCYTOPENIA
     Dosage: 25 MG, QD
     Route: 065
     Dates: start: 2017

REACTIONS (4)
  - Swelling [Unknown]
  - Deep vein thrombosis [Unknown]
  - Oedema [Unknown]
  - Pain in extremity [Unknown]
